FAERS Safety Report 23628996 (Version 2)
Quarter: 2024Q1

REPORT INFORMATION
  Report Type: Spontaneous
  Country: US (occurrence: US)
  Receive Date: 20240313
  Receipt Date: 20240315
  Transmission Date: 20240410
  Serious: Yes (Death)
  Sender: FDA-Public Use
  Company Number: US-Covis Pharma GmbH-2024COV00291

PATIENT
  Age: 65 Year
  Sex: Female

DRUGS (3)
  1. RILUZOLE [Suspect]
     Active Substance: RILUZOLE
     Route: 048
  2. RELYVRIO [Suspect]
     Active Substance: SODIUM PHENYLBUTYRATE\TAURURSODIOL
     Indication: Amyotrophic lateral sclerosis
     Dosage: 1 DOSAGE FORM 1 SACHET ONCE DAILY FOR 3 WEEKS, THEN 1 SACHET TWICE DAILY
     Dates: start: 202211
  3. RADICAVA [Concomitant]
     Active Substance: EDARAVONE
     Dosage: 1 TIME A DAY FOR 14 DAYS ON, THEN 14 DAYS OFF.

REACTIONS (4)
  - Death [Fatal]
  - Decreased appetite [Unknown]
  - Product use issue [Unknown]
  - Nausea [Unknown]

NARRATIVE: CASE EVENT DATE: 20230305
